FAERS Safety Report 19310875 (Version 1)
Quarter: 2021Q2

REPORT INFORMATION
  Report Type: Spontaneous
  Country: AU (occurrence: AU)
  Receive Date: 20210526
  Receipt Date: 20210526
  Transmission Date: 20210717
  Serious: Yes (Hospitalization)
  Sender: FDA-Public Use
  Company Number: AU-ALLERGAN-2119988US

PATIENT
  Sex: Female

DRUGS (1)
  1. MEMANTINE HCL ? BP [Suspect]
     Active Substance: MEMANTINE
     Indication: CATATONIA
     Dosage: 50 MG, QD

REACTIONS (6)
  - Sepsis [Unknown]
  - Product use in unapproved indication [Unknown]
  - Delirium [Unknown]
  - Fall [Unknown]
  - Hypothermia [Unknown]
  - Overdose [Unknown]
